FAERS Safety Report 5850830-4 (Version None)
Quarter: 2008Q3

REPORT INFORMATION
  Report Type: 
  Country: None (occurrence: None)
  Receive Date: 20080820
  Receipt Date: 20080802
  Transmission Date: 20090109
  Serious: Yes (Other)
  Sender: FDA-Public Use
  Company Number: GB-BAYER-200823928GPV

PATIENT

DRUGS (1)
  1. CAMPATH [Suspect]
     Indication: KIDNEY TRANSPLANT REJECTION
     Route: 042

REACTIONS (3)
  - INFECTION [None]
  - NEOPLASM MALIGNANT [None]
  - POLYARTHRITIS [None]
